FAERS Safety Report 13956302 (Version 1)
Quarter: 2017Q3

REPORT INFORMATION
  Report Type: Report from Study
  Country: None (occurrence: GB)
  Receive Date: 20170911
  Receipt Date: 20170911
  Transmission Date: 20171128
  Serious: Yes (Hospitalization, Other)
  Sender: FDA-Public Use
  Company Number: GB-ABBVIE-17K-167-2092162-00

PATIENT
  Age: 50 Year
  Sex: Male
  Weight: 90.65 kg

DRUGS (1)
  1. HUMIRA [Suspect]
     Active Substance: ADALIMUMAB
     Indication: PSORIASIS
     Route: 058
     Dates: start: 20110127

REACTIONS (3)
  - Renal scan abnormal [Unknown]
  - Biopsy kidney [Recovered/Resolved]
  - Liver scan abnormal [Unknown]

NARRATIVE: CASE EVENT DATE: 20170717
